FAERS Safety Report 17846746 (Version 1)
Quarter: 2020Q2

REPORT INFORMATION
  Report Type: Spontaneous
  Country: US (occurrence: US)
  Receive Date: 20200601
  Receipt Date: 20200601
  Transmission Date: 20200714
  Serious: Yes (Hospitalization, Other)
  Sender: FDA-Public Use
  Company Number: US-BTG-202000110

PATIENT
  Age: 7 Year
  Sex: Male

DRUGS (6)
  1. HYPERHYDRATION [Concomitant]
     Indication: DEHYDRATION
     Dosage: 200 ML/M2/H
     Route: 042
  2. METHOTREXATE. [Suspect]
     Active Substance: METHOTREXATE
     Indication: ACUTE LYMPHOCYTIC LEUKAEMIA
     Dosage: 5 G/M2
     Route: 065
  3. LEUCOVORIN. [Suspect]
     Active Substance: LEUCOVORIN
     Indication: TOXICITY TO VARIOUS AGENTS
     Dosage: 15 MG/M2 EVERY 3 H OR 100 MG/M2??EVERY 6 H
     Route: 065
  4. IMATINIB. [Suspect]
     Active Substance: IMATINIB MESYLATE
     Indication: ACUTE LYMPHOCYTIC LEUKAEMIA
     Dosage: 340 MG/M2
     Route: 065
  5. LEUCOVORIN. [Suspect]
     Active Substance: LEUCOVORIN
     Indication: TOXICITY TO VARIOUS AGENTS
     Dosage: 15 MG/M2 EVERY 3 H OR 100 MG/M2??EVERY 6 H
     Route: 065
  6. VORAXAZE [Suspect]
     Active Substance: GLUCARPIDASE
     Indication: TOXICITY TO VARIOUS AGENTS
     Dosage: UNKNOWN
     Route: 065

REACTIONS (4)
  - Thrombocytopenia [Unknown]
  - Acute kidney injury [Unknown]
  - Neutropenia [Unknown]
  - Clostridium difficile colitis [Unknown]
